FAERS Safety Report 22363760 (Version 1)
Quarter: 2023Q2

REPORT INFORMATION
  Report Type: Spontaneous
  Country: NL (occurrence: NL)
  Receive Date: 20230525
  Receipt Date: 20230525
  Transmission Date: 20230722
  Serious: Yes (Hospitalization)
  Sender: FDA-Public Use
  Company Number: None

PATIENT
  Sex: Female
  Weight: 72 kg

DRUGS (2)
  1. ENALAPRIL [Suspect]
     Active Substance: ENALAPRIL
     Indication: Hypertension
     Dosage: 20 MG, QD (1DD 1 TABLET)
     Route: 065
     Dates: start: 20220401
  2. PANTOPRAZOLE SODIUM [Concomitant]
     Active Substance: PANTOPRAZOLE SODIUM
     Indication: Product used for unknown indication
     Dosage: 20 MG (MAAGSAPRESISTENTE TABLET, 20 MG (MILLIGRAM))
     Route: 065

REACTIONS (3)
  - Fall [Unknown]
  - Clavicle fracture [Unknown]
  - Dizziness postural [Unknown]
